FAERS Safety Report 11877649 (Version 1)
Quarter: 2015Q4

REPORT INFORMATION
  Report Type: Spontaneous
  Country: PT (occurrence: PT)
  Receive Date: 20151230
  Receipt Date: 20151230
  Transmission Date: 20160305
  Serious: Yes (Hospitalization, Other)
  Sender: FDA-Public Use
  Company Number: PT-MYLANLABS-2015M1046375

PATIENT

DRUGS (4)
  1. FLUOXETINE [Suspect]
     Active Substance: FLUOXETINE HYDROCHLORIDE
     Indication: INTENTIONAL SELF-INJURY
  2. QUETIAPINE [Suspect]
     Active Substance: QUETIAPINE
     Indication: DEPRESSION
     Dosage: UNK
  3. FLUOXETINE [Suspect]
     Active Substance: FLUOXETINE HYDROCHLORIDE
     Indication: DEPRESSION
     Dosage: UNK
  4. QUETIAPINE [Suspect]
     Active Substance: QUETIAPINE
     Indication: INTENTIONAL SELF-INJURY

REACTIONS (5)
  - Intentional overdose [Recovering/Resolving]
  - Generalised tonic-clonic seizure [Recovering/Resolving]
  - Catatonia [Recovering/Resolving]
  - Loss of consciousness [Recovering/Resolving]
  - Neuroleptic malignant syndrome [Recovering/Resolving]
